FAERS Safety Report 18397502 (Version 1)
Quarter: 2020Q4

REPORT INFORMATION
  Report Type: Spontaneous
  Country: US (occurrence: US)
  Receive Date: 20201016
  Receipt Date: 20201016
  Transmission Date: 20210114
  Serious: Yes (Hospitalization)
  Sender: FDA-Public Use
  Company Number: None

PATIENT
  Age: 79 Year
  Sex: Female

DRUGS (1)
  1. VERAPAMIL [Suspect]
     Active Substance: VERAPAMIL HYDROCHLORIDE
     Route: 048
     Dates: start: 20200801, end: 20201011

REACTIONS (5)
  - Hypersensitivity [None]
  - Hypotension [None]
  - Lip swelling [None]
  - Pruritus [None]
  - Heart rate increased [None]

NARRATIVE: CASE EVENT DATE: 20201012
